FAERS Safety Report 23792865 (Version 1)
Quarter: 2024Q2

REPORT INFORMATION
  Report Type: Spontaneous
  Country: US (occurrence: US)
  Receive Date: 20240429
  Receipt Date: 20240429
  Transmission Date: 20240715
  Serious: Yes (Hospitalization, Other)
  Sender: FDA-Public Use
  Company Number: US-BRISTOL-MYERS SQUIBB COMPANY-2024-065838

PATIENT
  Age: 68 Year
  Sex: Male
  Weight: 76 kg

DRUGS (1)
  1. IDHIFA [Suspect]
     Active Substance: ENASIDENIB MESYLATE
     Indication: Acute myeloid leukaemia
     Route: 048
     Dates: start: 20221027

REACTIONS (4)
  - Tumour lysis syndrome [Unknown]
  - Mental status changes [Unknown]
  - Haematochezia [Unknown]
  - Dysphagia [Unknown]
